FAERS Safety Report 20334444 (Version 2)
Quarter: 2022Q1

REPORT INFORMATION
  Report Type: Spontaneous
  Country: US (occurrence: US)
  Receive Date: 20220114
  Receipt Date: 20220119
  Transmission Date: 20220423
  Serious: Yes (Other)
  Sender: FDA-Public Use
  Company Number: US-JNJFOC-20211148064

PATIENT
  Age: 5 Decade
  Sex: Female

DRUGS (12)
  1. ELMIRON [Suspect]
     Active Substance: PENTOSAN POLYSULFATE SODIUM
     Indication: Cystitis interstitial
     Route: 048
     Dates: start: 1997
  2. ELMIRON [Suspect]
     Active Substance: PENTOSAN POLYSULFATE SODIUM
     Dosage: 100 MG THREE TIMES DAILY, LATER 2 100 MG CAPSULES THREE TIMES DAILY
     Route: 048
     Dates: start: 199803, end: 2001
  3. ELMIRON [Suspect]
     Active Substance: PENTOSAN POLYSULFATE SODIUM
     Dosage: 2 100 MG CAPSULES THREE TIMES DAILY
     Route: 048
     Dates: start: 2001, end: 2018
  4. ELMIRON [Suspect]
     Active Substance: PENTOSAN POLYSULFATE SODIUM
     Route: 048
     Dates: end: 201810
  5. ELMIRON [Suspect]
     Active Substance: PENTOSAN POLYSULFATE SODIUM
     Route: 048
     Dates: start: 2019, end: 20210813
  6. LISINOPRIL [Concomitant]
     Active Substance: LISINOPRIL
     Indication: Hypertension
     Dates: start: 2000
  7. BUPROPION [Concomitant]
     Active Substance: BUPROPION
     Indication: Antidepressant therapy
     Dates: start: 2006
  8. LIALDA [Concomitant]
     Active Substance: MESALAMINE
     Indication: Colitis ulcerative
     Dates: start: 2001
  9. CITALOPRAM [Concomitant]
     Active Substance: CITALOPRAM HYDROBROMIDE
     Indication: Cystitis interstitial
     Dates: start: 2005
  10. HYDROXYZINE [Concomitant]
     Active Substance: HYDROXYZINE HYDROCHLORIDE
     Indication: Cystitis interstitial
     Dates: start: 1997
  11. BIMATOPROST [Concomitant]
     Active Substance: BIMATOPROST
     Indication: Growth of eyelashes
     Dates: start: 201807
  12. TRETINOIN [Concomitant]
     Active Substance: TRETINOIN
     Indication: Milia
     Dates: start: 201801, end: 201807

REACTIONS (6)
  - Maculopathy [Unknown]
  - Retinal dystrophy [Not Recovered/Not Resolved]
  - Dry age-related macular degeneration [Unknown]
  - Vitreous degeneration [Unknown]
  - Off label use [Unknown]
  - Product use issue [Unknown]

NARRATIVE: CASE EVENT DATE: 20010101
